FAERS Safety Report 6299934-5 (Version None)
Quarter: 2009Q3

REPORT INFORMATION
  Report Type: 
  Country: None (occurrence: None)
  Receive Date: 20090804
  Receipt Date: 20090724
  Transmission Date: 20100115
  Serious: Yes (Hospitalization)
  Sender: FDA-Public Use
  Company Number: 2009SP016759

PATIENT
  Age: 71 Year
  Sex: Female

DRUGS (2)
  1. PEG-INTRON [Suspect]
     Indication: HEPATITIS C
     Dosage: SC
     Route: 058
     Dates: start: 20090410, end: 20090701
  2. RIBAVIRIN [Suspect]
     Indication: HEPATITIS C
     Dosage: PO
     Route: 048
     Dates: start: 20090410, end: 20090701

REACTIONS (11)
  - ABDOMINAL DISTENSION [None]
  - ANURIA [None]
  - ASTHENIA [None]
  - BLOOD TEST ABNORMAL [None]
  - CONSTIPATION [None]
  - DYSPNOEA [None]
  - HEADACHE [None]
  - NERVOUS SYSTEM DISORDER [None]
  - THINKING ABNORMAL [None]
  - THYROID DISORDER [None]
  - TREMOR [None]
